FAERS Safety Report 6134006-1 (Version None)
Quarter: 2009Q1

REPORT INFORMATION
  Report Type: 
  Country: None (occurrence: None)
  Receive Date: 20090326
  Receipt Date: 20090313
  Transmission Date: 20090719
  Serious: No
  Sender: FDA-Public Use
  Company Number: US-B.I. PHARMACEUTICALS,INC./RIDGEFIELD-2009-BP-03390BP

PATIENT
  Sex: Female

DRUGS (7)
  1. ATROVENT HFA [Suspect]
     Indication: CHRONIC OBSTRUCTIVE PULMONARY DISEASE
     Dates: start: 20081101
  2. ATROVENT HFA [Suspect]
     Indication: EMPHYSEMA
  3. ATROVENT HFA [Suspect]
     Indication: BRONCHITIS CHRONIC
  4. ATROVENT HFA [Suspect]
     Indication: ASTHMA
  5. ATROVENT HFA [Suspect]
     Indication: DYSPNOEA
  6. ADVAIR HFA [Concomitant]
     Indication: DYSPNOEA
  7. ALBUTEROL SULFATE [Concomitant]
     Indication: DYSPNOEA

REACTIONS (1)
  - HYPERSENSITIVITY [None]
